FAERS Safety Report 20373404 (Version 1)
Quarter: 2022Q1

REPORT INFORMATION
  Report Type: Spontaneous
  Country: CA (occurrence: CA)
  Receive Date: 20220125
  Receipt Date: 20220125
  Transmission Date: 20220423
  Serious: Yes (Death)
  Sender: FDA-Public Use
  Company Number: CA-TEVA-2022-CA-2000700

PATIENT

DRUGS (7)
  1. TAMOXIFEN CITRATE [Suspect]
     Active Substance: TAMOXIFEN CITRATE
     Indication: Neoplasm
     Dosage: 100 MG/M2 DAILY;
     Route: 048
  2. CYCLOSPORINE [Suspect]
     Active Substance: CYCLOSPORINE
     Indication: Neoplasm
     Dosage: 300 MG/M2 DAILY;
     Route: 048
  3. DIPYRIDAMOLE [Suspect]
     Active Substance: DIPYRIDAMOLE
     Indication: Neoplasm
     Dosage: 400 MG/M2 DAILY;
     Route: 048
  4. ETOPOSIDE PHOSPHATE [Suspect]
     Active Substance: ETOPOSIDE PHOSPHATE
     Indication: Neoplasm
     Dosage: 60 MG/M2 DAILY;
     Route: 055
  5. KETOCONAZOLE [Suspect]
     Active Substance: KETOCONAZOLE
     Indication: Neoplasm
     Dosage: 350 MG/M2 DAILY;
     Route: 048
  6. METRONIDAZOLE [Suspect]
     Active Substance: METRONIDAZOLE
     Indication: Neoplasm
     Dosage: 250 MG/M2 DAILY;
     Route: 054
  7. METRONIDAZOLE [Suspect]
     Active Substance: METRONIDAZOLE
     Dosage: 750 MG/M2 DAILY;
     Route: 048

REACTIONS (1)
  - Neutropenic sepsis [Fatal]
